FAERS Safety Report 7403770-3 (Version None)
Quarter: 2011Q2

REPORT INFORMATION
  Report Type: 
  Country: None (occurrence: None)
  Receive Date: 20110408
  Receipt Date: 20110401
  Transmission Date: 20111010
  Serious: Yes (Death, Other)
  Sender: FDA-Public Use
  Company Number: US-BRISTOL-MYERS SQUIBB COMPANY-15649973

PATIENT
  Age: 37 Year
  Sex: Female

DRUGS (3)
  1. TERBINAFINE HCL [Suspect]
  2. DEPAKOTE [Suspect]
  3. ABILIFY [Suspect]
     Dosage: ABILIFY10
     Dates: start: 20100101

REACTIONS (6)
  - CEREBROVASCULAR ACCIDENT [None]
  - PREGNANCY [None]
  - RASH [None]
  - BLOOD GLUCOSE INCREASED [None]
  - DEATH [None]
  - ABORTION SPONTANEOUS [None]
